FAERS Safety Report 20871719 (Version 1)
Quarter: 2022Q2

REPORT INFORMATION
  Report Type: Report from Study
  Country: DE (occurrence: DE)
  Receive Date: 20220525
  Receipt Date: 20220525
  Transmission Date: 20220721
  Serious: Yes (Hospitalization)
  Sender: FDA-Public Use
  Company Number: DE-ABBVIE-22K-062-4390707-00

PATIENT
  Age: 67 Year
  Sex: Female

DRUGS (2)
  1. METHOTREXATE [Suspect]
     Active Substance: METHOTREXATE
     Indication: Product used for unknown indication
     Dosage: 10 MILLIGRAM, QW
     Route: 065
     Dates: end: 202203
  2. RINVOQ [Suspect]
     Active Substance: UPADACITINIB
     Indication: Rheumatoid arthritis
     Dosage: 15 MILLIGRAM
     Route: 048
     Dates: end: 20220314

REACTIONS (3)
  - Spondylolisthesis [Recovered/Resolved]
  - Vertebral foraminal stenosis [Recovered/Resolved]
  - Alveolitis [Recovered/Resolved]

NARRATIVE: CASE EVENT DATE: 20220221
